FAERS Safety Report 7934157-2 (Version None)
Quarter: 2011Q4

REPORT INFORMATION
  Report Type: 
  Country: None (occurrence: None)
  Receive Date: 20111118
  Receipt Date: 20111107
  Transmission Date: 20120403
  Serious: Yes (Death)
  Sender: FDA-Public Use
  Company Number: 1000025527

PATIENT
  Sex: Male

DRUGS (1)
  1. ESCITALOPRAM [Suspect]

REACTIONS (2)
  - ACCIDENT AT WORK [None]
  - FALL [None]
